FAERS Safety Report 17641727 (Version 1)
Quarter: 2020Q2

REPORT INFORMATION
  Report Type: Other
  Country: FR (occurrence: FR)
  Receive Date: 20200408
  Receipt Date: 20200408
  Transmission Date: 20200713
  Serious: Yes (Other)
  Sender: FDA-Public Use
  Company Number: FR-CELLTRION INC.-2020FR021273

PATIENT

DRUGS (6)
  1. PARACETAMOL [Concomitant]
     Active Substance: ACETAMINOPHEN
     Route: 048
  2. LANSOPRAZOLE. [Suspect]
     Active Substance: LANSOPRAZOLE
     Dosage: 1 DF, ONCE A DAY
     Route: 048
     Dates: start: 20200205
  3. SILODYX [Concomitant]
     Active Substance: SILODOSIN
     Route: 048
  4. LYRICA [Concomitant]
     Active Substance: PREGABALIN
     Route: 048
  5. RITUXIMAB (UNKNOWN) [Suspect]
     Active Substance: RITUXIMAB
     Indication: PROGRESSIVE MULTIPLE SCLEROSIS
     Dosage: 1 DF
     Route: 041
     Dates: start: 20170821, end: 202002
  6. SPAGULAX AU CITRATE DE POTASSIUM [Concomitant]
     Active Substance: HERBALS\PLANTAGO OVATA SEED\POTASSIUM CITRATE
     Route: 048

REACTIONS (2)
  - Product use in unapproved indication [Unknown]
  - Agranulocytosis [Recovered/Resolved]

NARRATIVE: CASE EVENT DATE: 20200219
